FAERS Safety Report 21526138 (Version 1)
Quarter: 2022Q4

REPORT INFORMATION
  Report Type: Spontaneous
  Country: CN (occurrence: CN)
  Receive Date: 20221031
  Receipt Date: 20221031
  Transmission Date: 20230113
  Serious: Yes (Hospitalization, Other)
  Sender: FDA-Public Use
  Company Number: None

PATIENT
  Age: 60 Year
  Sex: Female
  Weight: 52.5 kg

DRUGS (3)
  1. CYCLOPHOSPHAMIDE [Suspect]
     Active Substance: CYCLOPHOSPHAMIDE
     Indication: Ovarian cancer
     Dosage: 800 MG QD
     Route: 041
     Dates: start: 20220813, end: 20220813
  2. MESNA [Suspect]
     Active Substance: MESNA
     Indication: Ovarian cancer
     Dosage: 0.4 G, QD
     Route: 042
     Dates: start: 20220814, end: 20220815
  3. ETOPOSIDE [Suspect]
     Active Substance: ETOPOSIDE
     Indication: Ovarian cancer
     Dosage: 150 MG QD ,D1-4
     Route: 041
     Dates: start: 20220813, end: 20220816

REACTIONS (1)
  - Myelosuppression [Recovering/Resolving]

NARRATIVE: CASE EVENT DATE: 20220830
